FAERS Safety Report 8798899 (Version 1)
Quarter: 2012Q4

REPORT INFORMATION
  Report Type: 
  Country: MX (occurrence: MX)
  Receive Date: 20120920
  Receipt Date: 20120920
  Transmission Date: 20130627
  Serious: Yes (Death)
  Sender: FDA-Public Use
  Company Number: PHHY2012MX081221

PATIENT
  Age: 83 Year
  Sex: Female

DRUGS (3)
  1. EXELON PATCH [Suspect]
     Indication: DEMENTIA ALZHEIMER^S TYPE
     Dosage: 4.6 mg, daily (9mg/5cm2/ 24 hrs)
     Route: 062
     Dates: start: 201111
  2. AKATINOL [Concomitant]
     Indication: DEMENTIA ALZHEIMER^S TYPE
     Dosage: 20 mg, UNK
     Dates: start: 201101
  3. LEVOTHYROXINE (KARET) [Concomitant]
     Dosage: 75 ug, UNK
     Dates: start: 201204

REACTIONS (3)
  - Renal failure [Fatal]
  - Pneumonia [Fatal]
  - Hepatic failure [Fatal]
